FAERS Safety Report 8289766-0 (Version None)
Quarter: 2012Q2

REPORT INFORMATION
  Report Type: 
  Country: None (occurrence: None)
  Receive Date: 20120417
  Receipt Date: 20120417
  Transmission Date: 20120825
  Serious: No
  Sender: FDA-Public Use
  Company Number: US-PFIZER INC-2012090785

PATIENT
  Sex: Female

DRUGS (3)
  1. CHANTIX [Suspect]
     Dosage: UNK
     Route: 048
     Dates: start: 20120331
  2. TEGRETOL [Concomitant]
     Dosage: UNK
  3. LEXAPRO [Concomitant]
     Indication: DISTURBANCE IN SEXUAL AROUSAL
     Dosage: UNK

REACTIONS (4)
  - MOOD ALTERED [None]
  - INTENTIONAL DRUG MISUSE [None]
  - SOMNOLENCE [None]
  - FATIGUE [None]
